FAERS Safety Report 9523430 (Version 1)
Quarter: 2013Q1

REPORT INFORMATION
  Report Type: Spontaneous
  Country: US (occurrence: None)
  Receive Date: 20130305
  Receipt Date: 20130305
  Transmission Date: 20140127
  Serious: Yes (Hospitalization)
  Sender: FDA-Public Use
  Company Number: 163-21880-12012619

PATIENT
  Age: 46 Year
  Sex: Male

DRUGS (2)
  1. REVLIMID [Suspect]
     Indication: B-CELL LYMPHOMA
     Route: 048
     Dates: start: 201201
  2. WARFARIN SODIUM ( WARFARIN SODIUM) ( UNKNOWN) [Concomitant]

REACTIONS (7)
  - Renal failure acute [None]
  - Rash [None]
  - Septic shock [None]
  - Pain in extremity [None]
  - Blood pressure decreased [None]
  - Anaemia [None]
  - Pneumonia [None]
